FAERS Safety Report 24826800 (Version 2)
Quarter: 2025Q1

REPORT INFORMATION
  Report Type: Report from Study
  Country: CA (occurrence: CA)
  Receive Date: 20250109
  Receipt Date: 20250131
  Transmission Date: 20250409
  Serious: No
  Sender: ROCHE
  Company Number: CA-ROCHE-10000173564

PATIENT
  Sex: Female

DRUGS (1)
  1. OCREVUS [Suspect]
     Active Substance: OCRELIZUMAB
     Indication: Relapsing-remitting multiple sclerosis
     Dosage: MORE DOSAGE INFORMATION IS 300 MG AT DAY 0 AND 14, THEN 600 MG EVERY 6 MONTHS
     Route: 040
     Dates: start: 20190925

REACTIONS (18)
  - Back pain [Not Recovered/Not Resolved]
  - Palpitations [Not Recovered/Not Resolved]
  - Anxiety [Not Recovered/Not Resolved]
  - Arthralgia [Unknown]
  - Abdominal pain upper [Recovered/Resolved]
  - Gingival swelling [Recovered/Resolved]
  - Ear pain [Recovered/Resolved]
  - Migraine [Unknown]
  - Pyrexia [Recovered/Resolved]
  - Ocular hyperaemia [Recovered/Resolved]
  - Sneezing [Recovered/Resolved]
  - Intervertebral disc protrusion [Unknown]
  - Fatigue [Recovering/Resolving]
  - Memory impairment [Recovering/Resolving]
  - Contusion [Unknown]
  - COVID-19 [Recovered/Resolved]
  - Insomnia [Not Recovered/Not Resolved]
  - Uterine mass [Unknown]
